FAERS Safety Report 9537467 (Version 1)
Quarter: 2013Q3

REPORT INFORMATION
  Report Type: Spontaneous
  Country: FR (occurrence: FR)
  Receive Date: 20130919
  Receipt Date: 20130919
  Transmission Date: 20140515
  Serious: Yes (Hospitalization)
  Sender: FDA-Public Use
  Company Number: FR-GLAXOSMITHKLINE-B0921418A

PATIENT
  Sex: Male

DRUGS (8)
  1. AVODART [Suspect]
     Indication: BENIGN PROSTATIC HYPERPLASIA
     Dosage: .5MG PER DAY
     Route: 048
  2. LASILIX [Suspect]
     Indication: HYPERTENSION
     Dosage: 20MG PER DAY
     Route: 048
     Dates: start: 2013, end: 20130815
  3. RENITEC [Suspect]
     Indication: HYPERTENSION
     Dosage: 10MG PER DAY
     Route: 048
  4. XATRAL [Suspect]
     Indication: BENIGN PROSTATIC HYPERPLASIA
     Dosage: 10MG PER DAY
     Route: 048
  5. AMIODARONE [Suspect]
     Indication: ATRIAL FIBRILLATION
     Dosage: 200MG PER DAY
     Route: 048
  6. PREVISCAN 20 [Concomitant]
     Indication: ATRIAL FIBRILLATION
     Dosage: 20MG SEE DOSAGE TEXT
     Route: 048
     Dates: start: 2013
  7. KARDEGIC [Concomitant]
     Indication: PROPHYLAXIS
     Dosage: 75MG PER DAY
     Route: 048
  8. DAFALGAN [Concomitant]
     Indication: PAIN
     Dosage: 500MG AS DIRECTED
     Route: 048
     Dates: end: 20130814

REACTIONS (4)
  - Orthostatic hypotension [Recovered/Resolved]
  - Fall [Recovered/Resolved]
  - Rhabdomyolysis [Unknown]
  - Renal failure acute [Recovered/Resolved]
